FAERS Safety Report 9051289 (Version 1)
Quarter: 2013Q1

REPORT INFORMATION
  Report Type: Spontaneous
  Country: TH (occurrence: TH)
  Receive Date: 20130206
  Receipt Date: 20130206
  Transmission Date: 20140127
  Serious: Yes (Death)
  Sender: FDA-Public Use
  Company Number: PHHY2013TH010865

PATIENT
  Age: 63 Year
  Sex: Female

DRUGS (1)
  1. ZOMETA [Suspect]
     Indication: METASTASES TO BONE
     Dosage: 4 MG, PER MONTH
     Route: 041

REACTIONS (8)
  - Pulmonary oedema [Fatal]
  - Lung cancer metastatic [Fatal]
  - Nasopharyngitis [Unknown]
  - Cough [Unknown]
  - Oedema peripheral [Unknown]
  - Dyspnoea [Unknown]
  - Dysphagia [Unknown]
  - Hypophagia [Unknown]
